FAERS Safety Report 11988825 (Version 1)
Quarter: 2016Q1

REPORT INFORMATION
  Report Type: Report from Study
  Country: US (occurrence: None)
  Receive Date: 20160202
  Receipt Date: 20160202
  Transmission Date: 20160526
  Serious: Yes (Death, Other)
  Sender: FDA-Public Use
  Company Number: ADR-2014-00462

PATIENT
  Age: 44 Year
  Sex: Male

DRUGS (2)
  1. FENTANYL INTRATHECAL 200 MCG/ML [Suspect]
     Active Substance: FENTANYL
     Indication: CANCER PAIN
     Dosage: 87.99 MCG/DAY
  2. COMPOUNDED BACLOFEN INTRATHECAL 145 MCG/ML [Suspect]
     Active Substance: BACLOFEN
     Indication: CANCER PAIN
     Dosage: 63.79 MCG/DAY

REACTIONS (2)
  - Weight decreased [None]
  - Medical device site pain [None]
